FAERS Safety Report 5715583-9 (Version None)
Quarter: 2008Q2

REPORT INFORMATION
  Report Type: 
  Country: None (occurrence: None)
  Receive Date: 20080423
  Receipt Date: 20080423
  Transmission Date: 20081010
  Serious: Yes (Other)
  Sender: FDA-Public Use
  Company Number: None

PATIENT
  Age: 48 Year
  Sex: Female

DRUGS (1)
  1. CEREBYX [Suspect]
     Indication: ANTICONVULSANT DRUG LEVEL ABNORMAL
     Dosage: 1 GM X 1 IV
     Route: 042
     Dates: start: 20080420

REACTIONS (3)
  - ERYTHEMA [None]
  - PRURITUS [None]
  - RASH [None]
